FAERS Safety Report 7935874-0 (Version None)
Quarter: 2011Q4

REPORT INFORMATION
  Report Type: 
  Country: None (occurrence: None)
  Receive Date: 20111123
  Receipt Date: 20111116
  Transmission Date: 20120403
  Serious: Yes (Life-Threatening)
  Sender: FDA-Public Use
  Company Number: US-CELGENEUS-163-20785-11100961

PATIENT
  Sex: Male

DRUGS (5)
  1. THALOMID [Suspect]
     Dosage: 50 MILLIGRAM
     Route: 048
     Dates: start: 20101105, end: 20111101
  2. LISINOPRIL [Concomitant]
     Route: 065
  3. REVLIMID [Suspect]
     Route: 065
  4. NEURONTIN [Concomitant]
     Route: 065
  5. LORTAB [Concomitant]
     Dosage: 10
     Route: 065

REACTIONS (1)
  - MULTIPLE MYELOMA [None]
